FAERS Safety Report 23260036 (Version 1)
Quarter: 2023Q4

REPORT INFORMATION
  Report Type: Spontaneous
  Country: US (occurrence: US)
  Receive Date: 20231204
  Receipt Date: 20231204
  Transmission Date: 20240110
  Serious: Yes (Other)
  Sender: FDA-Public Use
  Company Number: US-009507513-2311USA010661

PATIENT
  Age: 79 Year
  Sex: Female

DRUGS (1)
  1. KEYTRUDA [Suspect]
     Active Substance: PEMBROLIZUMAB

REACTIONS (6)
  - Hepatotoxicity [Unknown]
  - Renal impairment [Unknown]
  - Chest discomfort [Unknown]
  - Hepatic enzyme increased [Unknown]
  - Asthenia [Unknown]
  - Dyspnoea [Unknown]
